FAERS Safety Report 17846888 (Version 1)
Quarter: 2020Q2

REPORT INFORMATION
  Report Type: Spontaneous
  Country: US (occurrence: US)
  Receive Date: 20200601
  Receipt Date: 20200601
  Transmission Date: 20200714
  Serious: Yes (Hospitalization)
  Sender: FDA-Public Use
  Company Number: None

PATIENT
  Age: 36 Year
  Sex: Female
  Weight: 84.15 kg

DRUGS (5)
  1. LORAZEPAM. [Concomitant]
     Active Substance: LORAZEPAM
     Dates: start: 20191228, end: 20191228
  2. DOCUSATE CALCIUM. [Concomitant]
     Active Substance: DOCUSATE CALCIUM
     Dates: start: 20191112
  3. DIVALPROEX ER [Suspect]
     Active Substance: DIVALPROEX SODIUM
     Indication: MOOD ALTERED
     Route: 048
     Dates: start: 20191205, end: 20191228
  4. OLANZAPINE. [Concomitant]
     Active Substance: OLANZAPINE
     Dates: start: 20191024
  5. CHLORPROMAZINE. [Concomitant]
     Active Substance: CHLORPROMAZINE
     Dates: start: 20191219

REACTIONS (6)
  - Lethargy [None]
  - Ammonia increased [None]
  - Hepatic steatosis [None]
  - Somnolence [None]
  - Depressed level of consciousness [None]
  - Speech disorder [None]

NARRATIVE: CASE EVENT DATE: 20191228
